FAERS Safety Report 4959516-1 (Version None)
Quarter: 2006Q1

REPORT INFORMATION
  Report Type: 
  Country: None (occurrence: None)
  Receive Date: 20060331
  Receipt Date: 20050414
  Transmission Date: 20060701
  Serious: Yes (Hospitalization, Disabling)
  Sender: FDA-Public Use
  Company Number: US-MERCK-0504USA02894

PATIENT
  Age: 38 Year
  Sex: Female
  Weight: 52 kg

DRUGS (24)
  1. VIOXX [Suspect]
     Indication: ARTHRITIS
     Route: 048
     Dates: start: 20000101, end: 20040901
  2. VIOXX [Suspect]
     Route: 048
     Dates: start: 20000101, end: 20040901
  3. VIOXX [Suspect]
     Indication: OSTEOPOROSIS
     Route: 048
     Dates: start: 20000101, end: 20040901
  4. VIOXX [Suspect]
     Route: 048
     Dates: start: 20000101, end: 20040901
  5. PREMARIN [Concomitant]
     Indication: HORMONE REPLACEMENT THERAPY
     Route: 065
     Dates: start: 19900101, end: 20051001
  6. LORTAB [Concomitant]
     Indication: PAIN
     Route: 065
     Dates: start: 20000101
  7. MOBIC [Concomitant]
     Indication: PAIN
     Route: 065
     Dates: start: 20010101
  8. ESTRATEST [Concomitant]
     Indication: HORMONE REPLACEMENT THERAPY
     Route: 065
     Dates: end: 20040101
  9. SEROQUEL [Concomitant]
     Indication: ANXIETY
     Route: 065
  10. SEROQUEL [Concomitant]
     Indication: SLEEP DISORDER
     Route: 065
  11. PROTONIX [Concomitant]
     Indication: GASTRIC DISORDER
     Route: 065
  12. MIDODRINE HYDROCHLORIDE [Concomitant]
     Indication: HYPOTENSION
     Route: 065
  13. FOSAMAX [Concomitant]
     Indication: OSTEOPOROSIS
     Route: 048
  14. FOSAMAX [Concomitant]
     Route: 048
     Dates: start: 20031113
  15. SOMA [Concomitant]
     Indication: MUSCLE SPASMS
     Route: 065
  16. CELEBREX [Suspect]
     Indication: ARTHRITIS
     Route: 065
     Dates: start: 20010101, end: 20020101
  17. SKELAXIN [Concomitant]
     Indication: MUSCLE SPASMS
     Route: 065
  18. VIOKASE [Concomitant]
     Indication: PANCREATITIS
     Route: 065
  19. REGLAN [Concomitant]
     Indication: GASTRIC DISORDER
     Route: 065
  20. CALCIUM (UNSPECIFIED) [Concomitant]
     Indication: BONE DISORDER
     Route: 065
  21. CYANOCOBALAMIN [Concomitant]
     Indication: ASTHENIA
     Route: 065
  22. XANAX [Concomitant]
     Indication: ANXIETY
     Route: 065
  23. AMBIEN [Concomitant]
     Indication: SLEEP DISORDER
     Route: 065
  24. [THERAPY UNSPECIFIED] [Concomitant]
     Route: 065

REACTIONS (19)
  - ABDOMINAL PAIN UPPER [None]
  - ADVERSE EVENT [None]
  - ANXIETY [None]
  - BACK PAIN [None]
  - CEREBROVASCULAR ACCIDENT [None]
  - CHANGE OF BOWEL HABIT [None]
  - DEPRESSION [None]
  - EXOSTOSIS [None]
  - INTERVERTEBRAL DISC DEGENERATION [None]
  - MULTIPLE SCLEROSIS [None]
  - MUSCLE SPASMS [None]
  - NAUSEA [None]
  - NECK PAIN [None]
  - OSTEOPOROSIS [None]
  - PANIC DISORDER [None]
  - PNEUMOTHORAX [None]
  - PRESCRIBED OVERDOSE [None]
  - SPINAL FRACTURE [None]
  - STRESS [None]
